FAERS Safety Report 12781207 (Version 3)
Quarter: 2017Q2

REPORT INFORMATION
  Report Type: Spontaneous
  Country: IT (occurrence: IT)
  Receive Date: 20160926
  Receipt Date: 20170511
  Transmission Date: 20170830
  Serious: Yes (Hospitalization)
  Sender: FDA-Public Use
  Company Number: IT-TEVA-694262ISR

PATIENT
  Age: 55 Year
  Sex: Female

DRUGS (1)
  1. LETROZOLE 2.5MG (LETROZOLE) UNKNOWN, 2.5 MG [Suspect]
     Active Substance: LETROZOLE
     Indication: CANCER HORMONAL THERAPY
     Route: 065
     Dates: start: 201207, end: 2012

REACTIONS (1)
  - Antisynthetase syndrome [Recovering/Resolving]
